FAERS Safety Report 6007923-0 (Version None)
Quarter: 2008Q4

REPORT INFORMATION
  Report Type: 
  Country: None (occurrence: None)
  Receive Date: 20081217
  Receipt Date: 20080611
  Transmission Date: 20090506
  Serious: No
  Sender: FDA-Public Use
  Company Number: US-ASTRAZENECA-2008UW11766

PATIENT
  Age: 75 Year
  Sex: Male
  Weight: 93 kg

DRUGS (5)
  1. CRESTOR [Suspect]
     Indication: BLOOD CHOLESTEROL
     Dosage: TWO 5 MG TABLETS
     Route: 048
     Dates: start: 20080601
  2. ASPIRIN [Concomitant]
  3. TIAZEM XR [Concomitant]
  4. QUINAPRIL [Concomitant]
  5. POTASSIUM CHLORIDE [Concomitant]

REACTIONS (1)
  - FEELING ABNORMAL [None]
